FAERS Safety Report 15590602 (Version 1)
Quarter: 2018Q4

REPORT INFORMATION
  Report Type: Spontaneous
  Country: CN (occurrence: CN)
  Receive Date: 20181106
  Receipt Date: 20181106
  Transmission Date: 20190205
  Serious: Yes (Other)
  Sender: FDA-Public Use
  Company Number: CN-SA-2018SA303312

PATIENT
  Age: 73 Year
  Sex: Male
  Weight: 55 kg

DRUGS (6)
  1. SODIUM CHLORIDE. [Concomitant]
     Active Substance: SODIUM CHLORIDE
     Dosage: 100 ML, QD
     Route: 041
     Dates: start: 20180604, end: 20180604
  2. FLUOROURACIL. [Suspect]
     Active Substance: FLUOROURACIL
     Indication: CHEMOTHERAPY
     Dosage: 3.5 G, QD
     Route: 042
     Dates: start: 20180605, end: 20180605
  3. BEVACIZUMAB. [Suspect]
     Active Substance: BEVACIZUMAB
     Indication: CHEMOTHERAPY
     Dosage: 300 MG, QD
     Route: 041
     Dates: start: 20180604, end: 20180604
  4. OXALIPLATIN. [Suspect]
     Active Substance: OXALIPLATIN
     Indication: CHEMOTHERAPY
     Dosage: 130 MG, QD
     Route: 041
     Dates: start: 20180605, end: 20180605
  5. GLUCOSE [Concomitant]
     Active Substance: DEXTROSE
     Dosage: 400 ML, QD
     Route: 041
     Dates: start: 20180605, end: 20180605
  6. SODIUM CHLORIDE. [Concomitant]
     Active Substance: SODIUM CHLORIDE
     Dosage: 100 ML, QD
     Route: 041
     Dates: start: 20180605, end: 20180605

REACTIONS (1)
  - Bone marrow failure [Recovering/Resolving]

NARRATIVE: CASE EVENT DATE: 20180608
